FAERS Safety Report 8428521-5 (Version None)
Quarter: 2012Q2

REPORT INFORMATION
  Report Type: 
  Country: None (occurrence: None)
  Receive Date: 20120606
  Receipt Date: 20120606
  Transmission Date: 20120825
  Serious: Yes (Hospitalization)
  Sender: FDA-Public Use
  Company Number: None

PATIENT
  Age: 75 Year
  Sex: Female
  Weight: 71 kg

DRUGS (1)
  1. DABIGATRAN, 150 MG, BOEHRINGER INGELHEIM [Suspect]
     Indication: CEREBROVASCULAR ACCIDENT
     Dosage: 150 MG, TWICE DAILY, PO
     Route: 048
     Dates: start: 20110905, end: 20111216

REACTIONS (5)
  - HAEMOPTYSIS [None]
  - HAEMATOCHEZIA [None]
  - DIZZINESS [None]
  - DYSPNOEA [None]
  - CHEST PAIN [None]
